FAERS Safety Report 6192527-X (Version None)
Quarter: 2009Q2

REPORT INFORMATION
  Report Type: 
  Country: None (occurrence: None)
  Receive Date: 20090518
  Receipt Date: 20090514
  Transmission Date: 20091009
  Serious: Yes (Death, Other)
  Sender: FDA-Public Use
  Company Number: PHEH2008US04830

PATIENT
  Sex: Male

DRUGS (7)
  1. AREDIA [Suspect]
     Indication: MULTIPLE MYELOMA
     Dosage: UNK
     Dates: start: 20051101
  2. ZOMETA [Suspect]
     Indication: MULTIPLE MYELOMA
  3. LIDEX [Concomitant]
  4. CHEMOTHERAPEUTICS NOS [Concomitant]
  5. PERIDEX [Concomitant]
  6. THALIDOMIDE [Concomitant]
  7. DECADRON                                /CAN/ [Concomitant]

REACTIONS (27)
  - AGRANULOCYTOSIS [None]
  - ANHEDONIA [None]
  - ANXIETY [None]
  - ARRHYTHMIA [None]
  - BONE DEBRIDEMENT [None]
  - BONE DISORDER [None]
  - BONE MARROW TRANSPLANT [None]
  - DEAFNESS NEUROSENSORY [None]
  - DEATH [None]
  - DEFORMITY [None]
  - DISABILITY [None]
  - DYSPHAGIA [None]
  - EMOTIONAL DISTRESS [None]
  - GRAFT VERSUS HOST DISEASE [None]
  - HEPATITIS [None]
  - IMPAIRED HEALING [None]
  - INJURY [None]
  - METASTASES TO SPINE [None]
  - MOUTH ULCERATION [None]
  - OSTEOMYELITIS ACUTE [None]
  - OSTEONECROSIS [None]
  - PAIN [None]
  - PAIN IN EXTREMITY [None]
  - RADIOTHERAPY [None]
  - SKIN EXFOLIATION [None]
  - SPINAL OSTEOARTHRITIS [None]
  - TOOTH EXTRACTION [None]
